FAERS Safety Report 23895316 (Version 1)
Quarter: 2024Q2

REPORT INFORMATION
  Report Type: Spontaneous
  Country: US (occurrence: US)
  Receive Date: 20240524
  Receipt Date: 20240524
  Transmission Date: 20240716
  Serious: No
  Sender: FDA-Public Use
  Company Number: US-BAYER-2024A074261

PATIENT
  Sex: Female

DRUGS (1)
  1. LOTRIMIN ULTRA JOCK ITCH [Suspect]
     Active Substance: BUTENAFINE HYDROCHLORIDE
     Dosage: UNK
     Route: 061

REACTIONS (2)
  - Pruritus [Unknown]
  - Condition aggravated [Unknown]
